FAERS Safety Report 7458430-X (Version None)
Quarter: 2011Q2

REPORT INFORMATION
  Report Type: 
  Country: None (occurrence: None)
  Receive Date: 20110504
  Receipt Date: 20110503
  Transmission Date: 20111010
  Serious: Yes (Life-Threatening, Hospitalization)
  Sender: FDA-Public Use
  Company Number: A0925460A

PATIENT
  Age: 53 Year
  Sex: Male

DRUGS (19)
  1. VITAMIN E [Concomitant]
  2. ACYCLOVIR [Concomitant]
  3. LEVOCARNITINE [Concomitant]
  4. ATIVAN [Concomitant]
  5. BACTRIM [Concomitant]
  6. LOPID [Concomitant]
  7. PRILOSEC [Concomitant]
  8. VELCADE [Suspect]
     Indication: MULTIPLE MYELOMA
  9. LENALIDOMIDE [Suspect]
     Indication: MULTIPLE MYELOMA
  10. ALPHA LIPOIC ACID [Concomitant]
  11. VITAMIN D [Concomitant]
  12. MULTI-VITAMIN [Concomitant]
  13. VITAMIN B [Concomitant]
  14. ASPIRIN [Concomitant]
  15. FOLIC ACID [Concomitant]
  16. IMODIUM MULTI-SYMPTOM RELIEF [Concomitant]
  17. MELPHALAN [Suspect]
  18. DEXAMETHASONE [Suspect]
     Indication: MULTIPLE MYELOMA
  19. MAGNESIUM OXIDE [Concomitant]

REACTIONS (5)
  - PANCYTOPENIA [None]
  - NAUSEA [None]
  - PYREXIA [None]
  - DIARRHOEA [None]
  - FATIGUE [None]
